FAERS Safety Report 7097644-8 (Version None)
Quarter: 2010Q4

REPORT INFORMATION
  Report Type: 
  Country: None (occurrence: None)
  Receive Date: 20101112
  Receipt Date: 20101102
  Transmission Date: 20110411
  Serious: Yes (Hospitalization)
  Sender: FDA-Public Use
  Company Number: US-BIOGENIDEC-2010BI029766

PATIENT
  Age: 25 Year
  Sex: Female

DRUGS (1)
  1. AVONEX [Suspect]
     Indication: MULTIPLE SCLEROSIS
     Route: 030
     Dates: start: 20100613, end: 20100824

REACTIONS (7)
  - ABASIA [None]
  - ARTHRALGIA [None]
  - FALL [None]
  - LOWER LIMB FRACTURE [None]
  - SPEECH DISORDER [None]
  - STRESS [None]
  - WEIGHT BEARING DIFFICULTY [None]
